FAERS Safety Report 11023632 (Version 2)
Quarter: 2015Q4

REPORT INFORMATION
  Report Type: Spontaneous
  Country: JP (occurrence: JP)
  Receive Date: 20150413
  Receipt Date: 20151016
  Transmission Date: 20160304
  Serious: Yes (Other)
  Sender: FDA-Public Use
  Company Number: JP-ALLERGAN-1506561US

PATIENT
  Age: 65 Year
  Sex: Male

DRUGS (8)
  1. COSOPT [Concomitant]
     Active Substance: DORZOLAMIDE HYDROCHLORIDE\TIMOLOL MALEATE
     Dosage: UNK, RIGHT EYE
     Dates: start: 20121012
  2. COSOPT [Concomitant]
     Active Substance: DORZOLAMIDE HYDROCHLORIDE\TIMOLOL MALEATE
     Dosage: UNK, LEFT EYE
     Dates: start: 20121012, end: 20140311
  3. LUMIGAN [Suspect]
     Active Substance: BIMATOPROST
     Indication: OPEN ANGLE GLAUCOMA
     Dosage: 1 GTT, QD, RIGHT EYE
     Route: 047
     Dates: start: 20120330
  4. ALPHAGAN P [Concomitant]
     Active Substance: BRIMONIDINE TARTRATE
     Dosage: UNK, RIGHT EYE
     Route: 047
     Dates: start: 20130502
  5. SANPILO [Concomitant]
     Active Substance: PILOCARPINE HYDROCHLORIDE
     Dosage: UNK, LEFT EYE
     Route: 047
     Dates: start: 20131129, end: 20140311
  6. ALPHAGAN P [Concomitant]
     Active Substance: BRIMONIDINE TARTRATE
     Dosage: UNK, LEFT EYE
     Route: 047
     Dates: start: 20130502, end: 20140311
  7. SANPILO [Concomitant]
     Active Substance: PILOCARPINE HYDROCHLORIDE
     Dosage: UNK, RIGHT EYE
     Route: 047
     Dates: start: 20131129
  8. LUMIGAN [Suspect]
     Active Substance: BIMATOPROST
     Dosage: 1 GTT, QD, LEFT EYE
     Route: 047
     Dates: start: 20120330, end: 20140311

REACTIONS (4)
  - Therapeutic response decreased [Unknown]
  - Intraocular pressure increased [Recovered/Resolved with Sequelae]
  - Visual acuity reduced [Recovered/Resolved with Sequelae]
  - Visual field defect [Recovered/Resolved with Sequelae]

NARRATIVE: CASE EVENT DATE: 20131123
